FAERS Safety Report 4604354-2 (Version None)
Quarter: 2005Q1

REPORT INFORMATION
  Report Type: 
  Country: None (occurrence: None)
  Receive Date: 20050214
  Receipt Date: 20041118
  Transmission Date: 20050727
  Serious: No
  Sender: FDA-Public Use
  Company Number: USA041184109

PATIENT
  Age: 66 Year
  Sex: Male

DRUGS (4)
  1. CIALIS [Suspect]
     Dosage: 10 MG DAY
     Dates: start: 20041001
  2. LIBENZAPRIL [Concomitant]
  3. TERAZOSIN HCL [Concomitant]
  4. LESCOL XL [Concomitant]

REACTIONS (1)
  - THERAPEUTIC RESPONSE DECREASED [None]
